FAERS Safety Report 11141431 (Version 1)
Quarter: 2015Q2

REPORT INFORMATION
  Report Type: Spontaneous
  Country: US (occurrence: US)
  Receive Date: 20150525
  Receipt Date: 20150525
  Transmission Date: 20150821
  Serious: No
  Sender: FDA-Public Use
  Company Number: US-JNJFOC-20120606975

PATIENT
  Age: 34 Year
  Sex: Male
  Weight: 75.75 kg

DRUGS (1)
  1. RISPERDAL CONSTA [Suspect]
     Active Substance: RISPERIDONE
     Indication: OBSESSIVE-COMPULSIVE DISORDER
     Route: 030
     Dates: start: 201204

REACTIONS (5)
  - Product physical issue [Unknown]
  - Drug dose omission [Not Recovered/Not Resolved]
  - Syringe issue [Unknown]
  - Wrong technique in drug usage process [Recovered/Resolved]
  - Off label use [Not Recovered/Not Resolved]

NARRATIVE: CASE EVENT DATE: 2012
